FAERS Safety Report 23321500 (Version 1)
Quarter: 2023Q4

REPORT INFORMATION
  Report Type: Spontaneous
  Country: US (occurrence: None)
  Receive Date: 20231220
  Receipt Date: 20231220
  Transmission Date: 20240109
  Serious: No
  Sender: FDA-Public Use
  Company Number: None

PATIENT
  Age: 65 Year
  Sex: Female
  Weight: 72 kg

DRUGS (18)
  1. LOSARTAN [Suspect]
     Active Substance: LOSARTAN
  2. DEVICE [Concomitant]
     Active Substance: DEVICE
  3. Levithyroxine [Concomitant]
  4. GABAPENTIN [Concomitant]
     Active Substance: GABAPENTIN
  5. LOSARTAN [Concomitant]
     Active Substance: LOSARTAN
  6. ATORVASTATIN [Concomitant]
     Active Substance: ATORVASTATIN
  7. Blood pressure monitor/cuff [Concomitant]
  8. bite splint [Concomitant]
  9. MELATONIN [Concomitant]
     Active Substance: MELATONIN
  10. TRAZODONE [Concomitant]
     Active Substance: TRAZODONE HYDROCHLORIDE
  11. Benedryl 25 [Concomitant]
  12. VITAMIN B COMPLEX [Concomitant]
     Active Substance: CYANOCOBALAMIN\DEXPANTHENOL\NIACINAMIDE\PYRIDOXINE HYDROCHLORIDE\RIBOFLAVIN 5^-PHOSPHATE SODIUM\THIA
  13. COENZYME Q10 [Concomitant]
     Active Substance: DIETARY SUPPLEMENT\UBIDECARENONE
  14. AD+K complex [Concomitant]
  15. MINERALS\VITAMINS [Concomitant]
     Active Substance: MINERALS\VITAMINS
  16. iron +C [Concomitant]
  17. magnesium citrate (CALM powder fizzy drink) or Slo-Mag magnesium [Concomitant]
  18. VALERIAN [Concomitant]
     Active Substance: VALERIAN

REACTIONS (2)
  - Insomnia [None]
  - Condition aggravated [None]
